FAERS Safety Report 8386548-6 (Version None)
Quarter: 2012Q2

REPORT INFORMATION
  Report Type: 
  Country: None (occurrence: None)
  Receive Date: 20120525
  Receipt Date: 20110623
  Transmission Date: 20120825
  Serious: No
  Sender: FDA-Public Use
  Company Number: US-GLAXOSMITHKLINE-A0932751A

PATIENT
  Age: 39 Year
  Sex: Female

DRUGS (3)
  1. CLARITIN [Concomitant]
  2. VERAMYST [Suspect]
     Indication: MYCOTIC ALLERGY
     Dosage: 2SPR PER DAY
     Route: 045
     Dates: start: 20110622
  3. QVAR 40 [Concomitant]

REACTIONS (1)
  - NERVOUSNESS [None]
